FAERS Safety Report 14796651 (Version 2)
Quarter: 2018Q3

REPORT INFORMATION
  Report Type: Report from Study
  Country: US (occurrence: US)
  Receive Date: 20180423
  Receipt Date: 20180720
  Transmission Date: 20181010
  Serious: No
  Sender: FDA-Public Use
  Company Number: US-AMGEN-USASL2018050253

PATIENT
  Age: 68 Year
  Sex: Male

DRUGS (3)
  1. REPATHA [Suspect]
     Active Substance: EVOLOCUMAB
     Dosage: 140 MG, Q2WK
     Route: 065
  2. REPATHA [Suspect]
     Active Substance: EVOLOCUMAB
     Indication: ARTERIOSCLEROSIS
     Dosage: UNK, Q2WK
     Route: 065
     Dates: start: 201711, end: 201804
  3. REPATHA [Suspect]
     Active Substance: EVOLOCUMAB
     Indication: HYPERCHOLESTEROLAEMIA
     Dosage: 420 MG, Q4WK
     Route: 065

REACTIONS (7)
  - Hot flush [Unknown]
  - Heart rate increased [Unknown]
  - Thirst [Unknown]
  - Hyperhidrosis [Unknown]
  - Neuralgia [Unknown]
  - Nausea [Unknown]
  - Blood pressure increased [Unknown]
